FAERS Safety Report 14357092 (Version 2)
Quarter: 2018Q1

REPORT INFORMATION
  Report Type: Report from Study
  Country: US (occurrence: ES)
  Receive Date: 20180105
  Receipt Date: 20180111
  Transmission Date: 20180509
  Serious: Yes (Hospitalization, Other)
  Sender: FDA-Public Use
  Company Number: US-EXELIXIS-XL18417011616

PATIENT
  Age: 62 Year
  Sex: Male
  Weight: 63 kg

DRUGS (7)
  1. HEPARIN [Concomitant]
     Active Substance: HEPARIN SODIUM
  2. NOLOTIL (METAMIZOLE MAGNESIUM) [Concomitant]
     Active Substance: METAMIZOLE MAGNESIUM
  3. OMEPRAZOLE. [Concomitant]
     Active Substance: OMEPRAZOLE
  4. TENOFOVIR [Concomitant]
     Active Substance: TENOFOVIR
  5. CABOZANTINIB [Suspect]
     Active Substance: CABOZANTINIB
     Indication: HEPATOCELLULAR CARCINOMA
     Dosage: 40 MG, UNK
     Route: 048
     Dates: start: 20171116
  6. PARACETAMOL [Concomitant]
     Active Substance: ACETAMINOPHEN
  7. NIVOLUMAB [Suspect]
     Active Substance: NIVOLUMAB
     Indication: HEPATOCELLULAR CARCINOMA
     Dosage: 240 MG, UNK
     Route: 042
     Dates: start: 20171116

REACTIONS (1)
  - Cholecystitis [Recovered/Resolved]

NARRATIVE: CASE EVENT DATE: 20171129
